FAERS Safety Report 16018199 (Version 1)
Quarter: 2019Q1

REPORT INFORMATION
  Report Type: Spontaneous
  Country: GB (occurrence: GB)
  Receive Date: 20190228
  Receipt Date: 20190228
  Transmission Date: 20190418
  Serious: Yes (Hospitalization, Other)
  Sender: FDA-Public Use
  Company Number: GB-MYLANLABS-2019M1018175

PATIENT
  Sex: Female

DRUGS (3)
  1. RISPERIDONE. [Suspect]
     Active Substance: RISPERIDONE
     Indication: AGGRESSION
     Dosage: UNK
     Route: 065
  2. RISPERIDONE. [Suspect]
     Active Substance: RISPERIDONE
     Indication: AGITATION
  3. QUETIAPINE. [Suspect]
     Active Substance: QUETIAPINE
     Indication: AGITATION
     Dosage: UNK
     Route: 065

REACTIONS (6)
  - Hypophagia [Recovered/Resolved]
  - Ischaemic stroke [Recovered/Resolved]
  - Pneumonia aspiration [Unknown]
  - Somnolence [Recovered/Resolved]
  - Dehydration [Recovered/Resolved]
  - Acute kidney injury [Unknown]
